FAERS Safety Report 20509193 (Version 1)
Quarter: 2022Q1

REPORT INFORMATION
  Report Type: Other
  Country: CA (occurrence: CA)
  Receive Date: 20220223
  Receipt Date: 20220223
  Transmission Date: 20220423
  Serious: Yes (Other)
  Sender: FDA-Public Use
  Company Number: CA-APOTEX-2022AP003664

PATIENT
  Age: 56 Year
  Sex: Female

DRUGS (1)
  1. BUSULFAN [Suspect]
     Active Substance: BUSULFAN
     Indication: Product used for unknown indication
     Dosage: 202 MILLIGRAM, QD
     Route: 042

REACTIONS (2)
  - Depressed level of consciousness [Unknown]
  - Seizure [Unknown]
